FAERS Safety Report 6141388-3 (Version None)
Quarter: 2009Q2

REPORT INFORMATION
  Report Type: 
  Country: None (occurrence: None)
  Receive Date: 20090402
  Receipt Date: 20090319
  Transmission Date: 20091009
  Serious: Yes (Other)
  Sender: FDA-Public Use
  Company Number: US-ROCHE-621189

PATIENT
  Sex: Male

DRUGS (2)
  1. ISOTRETINOIN [Suspect]
     Indication: ACNE
     Dosage: THE PATIENT WAS DISPENSED ACCUTANE 10 MG CAPSULE ON 11 JAN 09.
     Route: 065
  2. AMNESTEEM [Suspect]
     Indication: ACNE
     Dosage: PATIENT WAS DISPENSED AMNESTEEM 40 MG CAPSULE ON 06 FEB 2009 AND 20 MG CAPSULE ON 11 DEC 2008.
     Route: 065

REACTIONS (2)
  - MOOD ALTERED [None]
  - SUICIDAL IDEATION [None]
